FAERS Safety Report 4325062-1 (Version None)
Quarter: 2004Q1

REPORT INFORMATION
  Report Type: 
  Country: None (occurrence: None)
  Receive Date: 20040324
  Receipt Date: 20040312
  Transmission Date: 20041129
  Serious: Yes (Hospitalization)
  Sender: FDA-Public Use
  Company Number: US067333 GBWYE573110FEB04

PATIENT
  Age: 57 Year
  Sex: Female

DRUGS (3)
  1. ENBREL [Suspect]
     Indication: RHEUMATOID ARTHRITIS
     Dosage: 25 MG, 2 IN 1 WEEKS, SC
     Route: 058
     Dates: start: 20020101, end: 20040101
  2. PARAMOL-118 [Concomitant]
  3. MORPHINE SULFATE [Concomitant]

REACTIONS (4)
  - BREAST CYST [None]
  - PSEUDOMONAS INFECTION [None]
  - PURULENCE [None]
  - WOUND [None]
